FAERS Safety Report 8804746 (Version 1)
Quarter: 2012Q4

REPORT INFORMATION
  Report Type: 
  Country: US (occurrence: US)
  Receive Date: 20120924
  Receipt Date: 20120924
  Transmission Date: 20130627
  Serious: Yes (Other)
  Sender: FDA-Public Use
  Company Number: US-JNJFOC-20110805460

PATIENT
  Sex: Female

DRUGS (8)
  1. LEVAQUIN [Suspect]
     Indication: BRONCHITIS CHRONIC
     Route: 048
  2. LEVAQUIN [Suspect]
     Indication: BACTERIAL INFECTION
     Route: 048
  3. AVELOX [Suspect]
     Indication: SINUSITIS
     Route: 048
  4. AVELOX [Suspect]
     Indication: BRONCHITIS
     Route: 048
  5. PREDNISONE [Suspect]
     Indication: SINUSITIS
     Route: 048
  6. PREDNISONE [Suspect]
     Indication: BRONCHITIS
     Route: 048
  7. STEROIDS NOS [Suspect]
     Indication: SINUSITIS
     Route: 045
  8. STEROIDS NOS [Suspect]
     Indication: BRONCHITIS
     Route: 045

REACTIONS (6)
  - Rotator cuff syndrome [Unknown]
  - Rotator cuff syndrome [Unknown]
  - Rotator cuff syndrome [Unknown]
  - Rotator cuff syndrome [Unknown]
  - Plantar fasciitis [Unknown]
  - Tendon disorder [Unknown]
